FAERS Safety Report 18173912 (Version 3)
Quarter: 2020Q4

REPORT INFORMATION
  Report Type: Spontaneous
  Country: IE (occurrence: IE)
  Receive Date: 20200819
  Receipt Date: 20201106
  Transmission Date: 20210113
  Serious: Yes (Death, Hospitalization, Other)
  Sender: FDA-Public Use
  Company Number: IE-BRISTOL-MYERS SQUIBB COMPANY-BMS-2020-066988

PATIENT
  Age: 48 Year
  Sex: Female

DRUGS (4)
  1. BISOPROLOL [Concomitant]
     Active Substance: BISOPROLOL
     Indication: CEREBROVASCULAR ACCIDENT
     Dosage: 7.5 MILLIGRAM, QD
     Route: 048
     Dates: start: 202004
  2. NIVOLUMAB [Suspect]
     Active Substance: NIVOLUMAB
     Indication: ANAL CANCER
     Dosage: 480 MG  24/52 LY (Q 28/7)
     Route: 042
     Dates: start: 20191127, end: 20200611
  3. ATORVASTATIN [Concomitant]
     Active Substance: ATORVASTATIN
     Indication: CEREBROVASCULAR ACCIDENT
     Dosage: 80 MILLIGRAM, QD
     Route: 048
     Dates: start: 202004
  4. PANTOPRAZOLE [Concomitant]
     Active Substance: PANTOPRAZOLE
     Indication: CEREBROVASCULAR ACCIDENT
     Dosage: 40 MILLIGRAM, QD
     Route: 048
     Dates: start: 202004

REACTIONS (3)
  - Intentional product use issue [Unknown]
  - Malignant neoplasm progression [Fatal]
  - Cerebral infarction [Unknown]

NARRATIVE: CASE EVENT DATE: 20200402
